FAERS Safety Report 13260503 (Version 1)
Quarter: 2017Q1

REPORT INFORMATION
  Report Type: Spontaneous
  Country: US (occurrence: US)
  Receive Date: 20170222
  Receipt Date: 20170222
  Transmission Date: 20170428
  Serious: Yes (Other)
  Sender: FDA-Public Use
  Company Number: US-SA-2017SA028929

PATIENT
  Age: 79 Year
  Sex: Male

DRUGS (5)
  1. ALIROCUMAB PREFILLED PEN [Concomitant]
     Active Substance: ALIROCUMAB
     Indication: BLOOD CHOLESTEROL INCREASED
     Dates: start: 2017
  2. TAMSULOSIN [Concomitant]
     Active Substance: TAMSULOSIN
  3. CEPHALEXIN. [Concomitant]
     Active Substance: CEPHALEXIN
  4. PRALUENT [Suspect]
     Active Substance: ALIROCUMAB
     Indication: BLOOD CHOLESTEROL INCREASED
     Route: 065
     Dates: start: 2017
  5. TRAMADOL. [Concomitant]
     Active Substance: TRAMADOL

REACTIONS (1)
  - Nephrolithiasis [Unknown]
